FAERS Safety Report 7207671-5 (Version None)
Quarter: 2011Q1

REPORT INFORMATION
  Report Type: 
  Country: None (occurrence: None)
  Receive Date: 20110103
  Receipt Date: 20101222
  Transmission Date: 20110831
  Serious: Yes (Hospitalization)
  Sender: FDA-Public Use
  Company Number: US-PFIZER INC-US-WYE-H18410710

PATIENT
  Sex: Male
  Weight: 95 kg

DRUGS (6)
  1. BACLOFEN [Concomitant]
     Dosage: UNK
  2. METOPROLOL [Concomitant]
     Dosage: UNK
  3. XANAX [Concomitant]
     Dosage: UNK
  4. EFFEXOR XR [Suspect]
     Indication: DEPRESSION
     Dosage: UNK
     Dates: start: 19950101
  5. EFFEXOR XR [Suspect]
     Dosage: 225 MG, 1X/DAY
     Route: 065
     Dates: end: 20101001
  6. EFFEXOR XR [Suspect]
     Dosage: 225 MG, 1X/DAY
     Route: 065
     Dates: start: 20101026

REACTIONS (12)
  - DRUG WITHDRAWAL SYNDROME [None]
  - HEADACHE [None]
  - NAUSEA [None]
  - MENTAL STATUS CHANGES [None]
  - VIITH NERVE PARALYSIS [None]
  - VISUAL IMPAIRMENT [None]
  - LOSS OF CONSCIOUSNESS [None]
  - CARDIAC ARREST [None]
  - VISUAL FIELD DEFECT [None]
  - VOMITING [None]
  - COMA [None]
  - APHASIA [None]
